FAERS Safety Report 8514948-X (Version None)
Quarter: 2012Q3

REPORT INFORMATION
  Report Type: 
  Country: None (occurrence: None)
  Receive Date: 20120711
  Receipt Date: 20120711
  Transmission Date: 20120928
  Serious: No
  Sender: FDA-Public Use
  Company Number: None

PATIENT
  Sex: Female
  Weight: 58.9676 kg

DRUGS (2)
  1. PLAVIX [Suspect]
     Indication: TRANSIENT ISCHAEMIC ATTACK
     Dosage: 75 MG QDAY PO 1 1/2 WKS
     Route: 048
     Dates: start: 20120601
  2. PLAVIX [Suspect]
     Indication: CEREBROVASCULAR ACCIDENT
     Dosage: 75 MG QDAY PO 1 1/2 WKS
     Route: 048
     Dates: start: 20120601

REACTIONS (3)
  - NAUSEA [None]
  - DIARRHOEA [None]
  - HEADACHE [None]
